FAERS Safety Report 6001269-2 (Version None)
Quarter: 2008Q4

REPORT INFORMATION
  Report Type: 
  Country: None (occurrence: None)
  Receive Date: 20081215
  Receipt Date: 20071127
  Transmission Date: 20090506
  Serious: No
  Sender: FDA-Public Use
  Company Number: US-AMGEN-KDL251140

PATIENT
  Sex: Female

DRUGS (4)
  1. ENBREL [Suspect]
     Indication: RHEUMATOID ARTHRITIS
     Route: 058
     Dates: start: 20070831
  2. FOLIC ACID [Concomitant]
     Route: 048
  3. METHOTREXATE [Concomitant]
     Route: 048
  4. VOLTAREN [Concomitant]
     Route: 048

REACTIONS (9)
  - ANXIETY [None]
  - HYPERVENTILATION [None]
  - HYPOAESTHESIA [None]
  - MALAISE [None]
  - MUSCLE CONTRACTURE [None]
  - NAUSEA [None]
  - PARAESTHESIA [None]
  - RAYNAUD'S PHENOMENON [None]
  - SYNCOPE [None]
